FAERS Safety Report 7249975-6 (Version None)
Quarter: 2011Q1

REPORT INFORMATION
  Report Type: 
  Country: None (occurrence: None)
  Receive Date: 20110128
  Receipt Date: 20101129
  Transmission Date: 20110831
  Serious: No
  Sender: FDA-Public Use
  Company Number: A0897553A

PATIENT

DRUGS (2)
  1. BUPROPION HCL [Suspect]
     Route: 064
  2. BUPROPION HCL [Suspect]

REACTIONS (2)
  - DRUG EXPOSURE VIA BREAST MILK [None]
  - DRUG EXPOSURE DURING PREGNANCY [None]
